FAERS Safety Report 16326863 (Version 1)
Quarter: 2019Q2

REPORT INFORMATION
  Report Type: Spontaneous
  Country: JP (occurrence: JP)
  Receive Date: 20190517
  Receipt Date: 20190517
  Transmission Date: 20190711
  Serious: Yes (Other)
  Sender: FDA-Public Use
  Company Number: JP-PFIZER INC-2019212516

PATIENT
  Age: 70 Year
  Sex: Male

DRUGS (41)
  1. SOLU-MEDROL [Suspect]
     Active Substance: METHYLPREDNISOLONE SODIUM SUCCINATE
     Dosage: 125 MG, UNK
     Route: 042
  2. DORIPENEM. [Suspect]
     Active Substance: DORIPENEM
     Dosage: 0.25 MG, UNK
     Route: 042
  3. ZOPICLONE [Suspect]
     Active Substance: ZOPICLONE
     Dosage: UNK
     Route: 048
  4. KETOPROFEN. [Suspect]
     Active Substance: KETOPROFEN
     Dosage: UNK
     Route: 061
  5. SODIUM PICOSULFATE [Suspect]
     Active Substance: SODIUM PICOSULFATE
     Dosage: UNK
     Route: 048
  6. AMINOTRIPA 1 [Concomitant]
     Dosage: UNK
  7. MALTOSE ANHYDROUS [Concomitant]
     Active Substance: MALTOSE ANHYDROUS
  8. LANSOPRAZOLE. [Suspect]
     Active Substance: LANSOPRAZOLE
     Dosage: 15 MG, UNK
     Route: 048
  9. DISTIGMINE BROMIDE [Suspect]
     Active Substance: DISTIGMINE BROMIDE
     Dosage: 5 MG, UNK
     Route: 048
  10. POLARAMINE [Suspect]
     Active Substance: DEXCHLORPHENIRAMINE MALEATE
     Dosage: 2 MG, UNK
     Route: 048
  11. GARASONE [Suspect]
     Active Substance: BETAMETHASONE SODIUM PHOSPHATE\GENTAMICIN SULFATE
     Dosage: UNK
     Route: 061
  12. ALBUMIN (HUMAN) [Concomitant]
     Active Substance: ALBUMIN HUMAN
     Dosage: UNK
  13. NAPROXEN. [Suspect]
     Active Substance: NAPROXEN
     Dosage: 100 MG, UNK
     Route: 048
  14. CERCINE [Suspect]
     Active Substance: DIAZEPAM
     Dosage: UNK
     Route: 048
  15. MYSLEE [Suspect]
     Active Substance: ZOLPIDEM TARTRATE
     Dosage: 5 MG, UNK
     Route: 048
  16. FLOMOXEF [Suspect]
     Active Substance: FLOMOXEF
     Dosage: 1 G, UNK
     Route: 042
  17. SOLDEM [Concomitant]
     Active Substance: DEXTROSE\POTASSIUM CHLORIDE\SODIUM CHLORIDE\SODIUM LACTATE
     Dosage: UNK
  18. NAROPIN [Concomitant]
     Active Substance: ROPIVACAINE HYDROCHLORIDE
     Dosage: UNK
  19. FLUNITRAZEPAM [Suspect]
     Active Substance: FLUNITRAZEPAM
     Dosage: 1 MG, UNK
     Route: 048
  20. PHENOBARBITAL. [Suspect]
     Active Substance: PHENOBARBITAL
     Dosage: 10 MG, UNK
     Route: 048
  21. TEPRENONE [Suspect]
     Active Substance: TEPRENONE
     Dosage: 50 MG, UNK
     Route: 048
  22. LOXONIN [Suspect]
     Active Substance: LOXOPROFEN SODIUM
     Dosage: 60 MG, UNK
     Route: 048
  23. PAZUFLOXACIN [Suspect]
     Active Substance: PAZUFLOXACIN
     Dosage: 500 MG, UNK
     Route: 043
  24. HUMULIN R [Concomitant]
     Active Substance: INSULIN HUMAN
     Dosage: UNK
  25. MOBIC [Concomitant]
     Active Substance: MELOXICAM
     Dosage: UNK
  26. DEXTRAN 40 [Concomitant]
     Active Substance: DEXTRAN 40
     Dosage: UNK
  27. SENNOSIDE [SENNOSIDE A+B] [Concomitant]
     Active Substance: SENNOSIDES A AND B
     Dosage: UNK
     Route: 065
  28. OMEPRAZOLE. [Concomitant]
     Active Substance: OMEPRAZOLE
     Dosage: UNK
  29. CEFOTIAM HYDROCHLORIDE [Concomitant]
     Active Substance: CEFOTIAM HYDROCHLORIDE
     Dosage: UNK
  30. EDARAVONE [Concomitant]
     Active Substance: EDARAVONE
     Dosage: UNK
  31. BAYASPIRIN [Suspect]
     Active Substance: ASPIRIN
     Dosage: 100 MG, UNK
     Route: 048
  32. VOLTAREN [DICLOFENAC] [Suspect]
     Active Substance: DICLOFENAC SODIUM
     Dosage: 25 MG, UNK
     Route: 048
  33. CATACLOT [OZAGREL SODIUM] [Concomitant]
     Dosage: UNK
  34. MULTIVITAMIN [ASCORBIC ACID;CALCIUM PANTOTHENATE;ERGOCALCIFEROL;NICOTI [Concomitant]
     Active Substance: VITAMINS
     Dosage: UNK
  35. BROMHEXINE HYDROCHLORIDE [Concomitant]
     Active Substance: BROMHEXINE HYDROCHLORIDE
     Dosage: UNK
  36. PHENOBARBITAL SODIUM. [Concomitant]
     Active Substance: PHENOBARBITAL SODIUM
     Dosage: UNK
  37. NICARDIPINE HYDROCHLORIDE. [Concomitant]
     Active Substance: NICARDIPINE HYDROCHLORIDE
  38. CALCIUM CHLORIDE ANHYDROUS [Concomitant]
     Active Substance: CALCIUM CHLORIDE ANHYDROUS
  39. MAGNESIUM OXIDE. [Suspect]
     Active Substance: MAGNESIUM OXIDE
     Dosage: 330 MG, UNK
     Route: 048
  40. TEGRETOL [Suspect]
     Active Substance: CARBAMAZEPINE
     Dosage: 100 MG, UNK
     Route: 048
  41. HEPARIN [Concomitant]
     Active Substance: HEPARIN SODIUM
     Dosage: UNK

REACTIONS (3)
  - Sepsis [Unknown]
  - Liver disorder [Unknown]
  - Oculomucocutaneous syndrome [Unknown]
